FAERS Safety Report 6796216-X (Version None)
Quarter: 2010Q2

REPORT INFORMATION
  Report Type: 
  Country: None (occurrence: None)
  Receive Date: 20100625
  Receipt Date: 20100616
  Transmission Date: 20101027
  Serious: Yes (Life-Threatening, Hospitalization, Other)
  Sender: FDA-Public Use
  Company Number: FI-ROCHE-709961

PATIENT
  Sex: Male

DRUGS (1)
  1. XELODA [Suspect]
     Route: 048
     Dates: start: 20100517, end: 20100518

REACTIONS (4)
  - CARDIAC ARREST [None]
  - HEADACHE [None]
  - MUSCULOSKELETAL PAIN [None]
  - VENTRICULAR HYPOKINESIA [None]
